FAERS Safety Report 24409834 (Version 1)
Quarter: 2024Q4

REPORT INFORMATION
  Report Type: Spontaneous
  Country: US (occurrence: US)
  Receive Date: 20241008
  Receipt Date: 20241008
  Transmission Date: 20250115
  Serious: No
  Sender: KALEO
  Company Number: US-Kaleo, Inc.-2023KL000062

PATIENT
  Age: 50 Year
  Sex: Female

DRUGS (1)
  1. AUVI-Q [Suspect]
     Active Substance: EPINEPHRINE
     Dates: start: 20230905, end: 20230905

REACTIONS (2)
  - Palpitations [Recovered/Resolved]
  - Expired device used [Recovered/Resolved]

NARRATIVE: CASE EVENT DATE: 20230905
